FAERS Safety Report 22207461 (Version 4)
Quarter: 2023Q2

REPORT INFORMATION
  Report Type: Spontaneous
  Country: GB (occurrence: GB)
  Receive Date: 20230413
  Receipt Date: 20230613
  Transmission Date: 20230721
  Serious: Yes (Hospitalization, Other)
  Sender: FDA-Public Use
  Company Number: GB-BAXTER-2023BAX014578

PATIENT
  Age: 12 Year
  Sex: Male

DRUGS (47)
  1. PANTOPRAZOLE [Suspect]
     Active Substance: PANTOPRAZOLE
     Indication: Gastrooesophageal reflux disease
     Dosage: 10 MILLIGRAM, QD
     Route: 042
     Dates: start: 20230117, end: 20230301
  2. SODIUM CHLORIDE [Suspect]
     Active Substance: SODIUM CHLORIDE
     Indication: Parenteral nutrition
     Dosage: COMPOUNDED PN 5 NIGHTS A WEEK
     Route: 042
  3. SODIUM CHLORIDE [Suspect]
     Active Substance: SODIUM CHLORIDE
     Dosage: COMPOUNDED PN 5 NIGHTS A WEEK
     Route: 042
  4. SODIUM CHLORIDE [Suspect]
     Active Substance: SODIUM CHLORIDE
     Dosage: COMPOUNDED PN 5 NIGHTS A WEEK
     Route: 042
  5. SODIUM CHLORIDE [Suspect]
     Active Substance: SODIUM CHLORIDE
     Dosage: UNK
     Route: 050
  6. ONDANSETRON [Suspect]
     Active Substance: ONDANSETRON
     Indication: Vomiting
     Dosage: 3.5 MILLIGRAM, TID
     Route: 042
     Dates: start: 20230117
  7. AMINO ACIDS, SOURCE UNSPECIFIED [Suspect]
     Active Substance: AMINO ACIDS, SOURCE UNSPECIFIED
     Indication: Parenteral nutrition
     Dosage: 25 (COMPOUNDED PN 5 NIGHTS A WEEK); ;
     Route: 042
  8. AMINO ACIDS, SOURCE UNSPECIFIED [Suspect]
     Active Substance: AMINO ACIDS, SOURCE UNSPECIFIED
     Dosage: 25 (COMPOUNDED PN 5 NIGHTS A WEEK); ;
     Route: 042
  9. AMINO ACIDS, SOURCE UNSPECIFIED [Suspect]
     Active Substance: AMINO ACIDS, SOURCE UNSPECIFIED
     Dosage: 25 (COMPOUNDED PN 5 NIGHTS A WEEK); ;
     Route: 042
  10. CALCIUM CHLORIDE [Suspect]
     Active Substance: CALCIUM CHLORIDE
     Indication: Parenteral nutrition
     Dosage: COMPOUNDED PN 5 NIGHTS A WEEK
     Route: 042
  11. CALCIUM CHLORIDE [Suspect]
     Active Substance: CALCIUM CHLORIDE
     Dosage: COMPOUNDED PN 5 NIGHTS A WEEK
     Route: 042
  12. CALCIUM CHLORIDE [Suspect]
     Active Substance: CALCIUM CHLORIDE
     Dosage: COMPOUNDED PN 5 NIGHTS A WEEK
     Route: 042
  13. DEXTROSE [Suspect]
     Active Substance: DEXTROSE\DEXTROSE MONOHYDRATE
     Indication: Parenteral nutrition
     Dosage: COMPOUNDED PN 5 NIGHTS A WEEK
     Route: 042
  14. DEXTROSE [Suspect]
     Active Substance: DEXTROSE\DEXTROSE MONOHYDRATE
     Dosage: COMPOUNDED PN 5 NIGHTS A WEEK
     Route: 042
  15. DEXTROSE [Suspect]
     Active Substance: DEXTROSE\DEXTROSE MONOHYDRATE
     Dosage: COMPOUNDED PN 5 NIGHTS A WEEK
     Route: 042
  16. DEXTROSE [Suspect]
     Active Substance: DEXTROSE\DEXTROSE MONOHYDRATE
     Dosage: COMPOUNDED PN 5 NIGHTS A WEEK
     Route: 042
  17. MAGNESIUM SULFATE [Suspect]
     Active Substance: MAGNESIUM SULFATE
     Indication: Parenteral nutrition
     Dosage: COMPOUNDED PN 5 NIGHTS A WEEK
     Route: 042
  18. MAGNESIUM SULFATE [Suspect]
     Active Substance: MAGNESIUM SULFATE
     Dosage: COMPOUNDED PN 5 NIGHTS A WEEK
     Route: 042
  19. MAGNESIUM SULFATE [Suspect]
     Active Substance: MAGNESIUM SULFATE
     Dosage: (BAG) COMPOUNDED PN 5 NIGHTS A WEEK;
     Route: 042
  20. AMINO ACIDS\DEXTROSE\ELECTROLYTES NOS [Suspect]
     Active Substance: AMINO ACIDS\DEXTROSE\ELECTROLYTES NOS
     Dosage: 1650 MILLILITER, Q12H
     Route: 042
     Dates: start: 20230227
  21. PEDITRACE [Suspect]
     Active Substance: CUPRIC CHLORIDE\MANGANESE CHLORIDE\POTASSIUM IODIDE\SODIUM FLUORIDE\SODIUM SELENITE\ZINC CHLORIDE
     Indication: Parenteral nutrition
     Dosage: COMPOUNDED PN 5 NIGHTS A WEEK
     Route: 042
  22. PEDITRACE [Suspect]
     Active Substance: CUPRIC CHLORIDE\MANGANESE CHLORIDE\POTASSIUM IODIDE\SODIUM FLUORIDE\SODIUM SELENITE\ZINC CHLORIDE
     Dosage: COMPOUNDED PN 5 NIGHTS A WEEK
     Route: 042
  23. PEDITRACE [Suspect]
     Active Substance: CUPRIC CHLORIDE\MANGANESE CHLORIDE\POTASSIUM IODIDE\SODIUM FLUORIDE\SODIUM SELENITE\ZINC CHLORIDE
     Dosage: COMPOUNDED PN 5 NIGHTS A WEEK
     Route: 042
  24. POTASSIUM CHLORIDE [Suspect]
     Active Substance: POTASSIUM CHLORIDE
     Indication: Parenteral nutrition
     Dosage: COMPOUNDED PN 5 NIGHTS A WEEK
     Route: 042
  25. POTASSIUM CHLORIDE [Suspect]
     Active Substance: POTASSIUM CHLORIDE
     Dosage: COMPOUNDED PN 5 NIGHTS A WEEK
     Route: 042
  26. POTASSIUM CHLORIDE [Suspect]
     Active Substance: POTASSIUM CHLORIDE
     Dosage: COMPOUNDED PN 5 NIGHTS A WEEK
     Route: 042
  27. SMOFLIPID [Suspect]
     Active Substance: FISH OIL\MEDIUM-CHAIN TRIGLYCERIDES\OLIVE OIL\SOYBEAN OIL
     Indication: Parenteral nutrition
     Dosage: COMPOUNDED PN 5 NIGHTS A WEEK
     Route: 042
  28. SMOFLIPID [Suspect]
     Active Substance: FISH OIL\MEDIUM-CHAIN TRIGLYCERIDES\OLIVE OIL\SOYBEAN OIL
     Dosage: COMPOUNDED PN 5 NIGHTS A WEEK
     Route: 042
  29. SMOFLIPID [Suspect]
     Active Substance: FISH OIL\MEDIUM-CHAIN TRIGLYCERIDES\OLIVE OIL\SOYBEAN OIL
     Dosage: COMPOUNDED PN 5 NIGHTS A WEEK
     Route: 042
  30. SODIUM GLYCEROPHOSPHATE [Suspect]
     Active Substance: SODIUM GLYCEROPHOSPHATE
     Indication: Parenteral nutrition
     Dosage: COMPOUNDED PN 5 NIGHTS A WEEK
     Route: 042
  31. SODIUM GLYCEROPHOSPHATE [Suspect]
     Active Substance: SODIUM GLYCEROPHOSPHATE
     Dosage: COMPOUNDED PN 5 NIGHTS A WEEK
     Route: 042
  32. SODIUM GLYCEROPHOSPHATE [Suspect]
     Active Substance: SODIUM GLYCEROPHOSPHATE
     Dosage: COMPOUNDED PN 5 NIGHTS A WEEK
     Route: 042
  33. VITAMINS [Suspect]
     Active Substance: VITAMINS
     Indication: Parenteral nutrition
     Dosage: COMPOUNDED PN 5 NIGHTS A WEEK
     Route: 042
  34. VITAMINS [Suspect]
     Active Substance: VITAMINS
     Dosage: COMPOUNDED PN 5 NIGHTS A WEEK
     Route: 042
  35. VITAMINS [Suspect]
     Active Substance: VITAMINS
     Dosage: COMPOUNDED PN 5 NIGHTS A WEEK
     Route: 042
  36. ERGOCALCIFEROL\PHYTONADIONE\RETINOL\TOCOPHEROL [Suspect]
     Active Substance: ERGOCALCIFEROL\PHYTONADIONE\RETINOL\TOCOPHEROL
     Indication: Parenteral nutrition
     Dosage: COMPOUNDED PN 5 NIGHTS A WEEK
     Route: 042
  37. ERGOCALCIFEROL\PHYTONADIONE\RETINOL\TOCOPHEROL [Suspect]
     Active Substance: ERGOCALCIFEROL\PHYTONADIONE\RETINOL\TOCOPHEROL
     Dosage: COMPOUNDED PN 5 NIGHTS A WEEK
     Route: 042
  38. ERGOCALCIFEROL\PHYTONADIONE\RETINOL\TOCOPHEROL [Suspect]
     Active Substance: ERGOCALCIFEROL\PHYTONADIONE\RETINOL\TOCOPHEROL
     Dosage: COMPOUNDED PN 5 NIGHTS A WEEK
     Route: 042
  39. WATER [Suspect]
     Active Substance: WATER
     Indication: Parenteral nutrition
     Dosage: UNK
     Route: 042
  40. WATER [Suspect]
     Active Substance: WATER
     Dosage: COMPOUNDED PN 5 NIGHTS A WEEK
     Route: 042
  41. WATER [Suspect]
     Active Substance: WATER
     Dosage: COMPOUNDED PN 5 NIGHTS A WEEK
     Route: 042
  42. WATER FOR INJECTION [Suspect]
     Active Substance: WATER
     Indication: Parenteral nutrition
     Dosage: COMPOUNDED PN 5 NIGHTS A WEEK
     Route: 042
  43. WATER FOR INJECTION [Suspect]
     Active Substance: WATER
     Dosage: COMPOUNDED PN 5 NIGHTS A WEEK
     Route: 042
  44. WATER FOR INJECTION [Suspect]
     Active Substance: WATER
     Dosage: COMPOUNDED PN 5 NIGHTS A WEEK
     Route: 042
  45. IRON [Suspect]
     Active Substance: IRON
     Dosage: IRON CHLORIDE, 1.79 UMOL/ML
  46. ESOMEPRAZOLE [Concomitant]
     Active Substance: ESOMEPRAZOLE
     Indication: Gastrooesophageal reflux disease
     Dosage: 20 MILLIGRAM, QD
     Dates: start: 20230302
  47. ASCORBIC ACID\VITAMIN B COMPLEX [Concomitant]
     Active Substance: ASCORBIC ACID\VITAMIN B COMPLEX
     Dosage: UNK

REACTIONS (16)
  - Blood urea increased [Recovered/Resolved]
  - Electrolyte imbalance [Unknown]
  - Blood potassium decreased [Unknown]
  - Blood magnesium decreased [Unknown]
  - Blood phosphorus decreased [Unknown]
  - Hypernatraemia [Recovered/Resolved]
  - Hypercalcaemia [Recovered/Resolved]
  - Drug intolerance [Unknown]
  - Pain [Recovering/Resolving]
  - Emotional disorder [Recovering/Resolving]
  - Alanine aminotransferase increased [Recovered/Resolved]
  - Klebsiella test positive [Unknown]
  - Blood creatinine increased [Unknown]
  - Dehydration [Unknown]
  - Cholelithiasis [Unknown]
  - Blood triglycerides increased [Unknown]

NARRATIVE: CASE EVENT DATE: 20230224
